FAERS Safety Report 8425840-3 (Version None)
Quarter: 2012Q2

REPORT INFORMATION
  Report Type: 
  Country: None (occurrence: None)
  Receive Date: 20120611
  Receipt Date: 20120606
  Transmission Date: 20120825
  Serious: Yes (Other)
  Sender: FDA-Public Use
  Company Number: PHHY2012CO049145

PATIENT
  Sex: Female

DRUGS (6)
  1. ZOLEDRONOC ACID [Suspect]
     Indication: OSTEOPOROSIS
     Dosage: 5 MG, YEARLY
     Route: 042
     Dates: start: 20110301
  2. LYRICA [Concomitant]
  3. ATORVASTATIN CALCIUM [Concomitant]
  4. TRIMEBUTINE [Concomitant]
  5. EUTHYROX [Concomitant]
  6. ZOLEDRONOC ACID [Suspect]
     Dosage: 5 MG, YEARLY
     Route: 042
     Dates: start: 20120301

REACTIONS (1)
  - BONE DENSITY DECREASED [None]
